FAERS Safety Report 6434188-8 (Version None)
Quarter: 2009Q4

REPORT INFORMATION
  Report Type: 
  Country: None (occurrence: None)
  Receive Date: 20091110
  Receipt Date: 20090603
  Transmission Date: 20100525
  Serious: No
  Sender: FDA-Public Use
  Company Number: US-ASTRAZENECA-2009SE10153

PATIENT
  Sex: Female

DRUGS (8)
  1. PRILOSEC OTC [Suspect]
     Indication: GASTROOESOPHAGEAL REFLUX DISEASE
     Dosage: UNKNOWN
     Route: 048
  2. SYNTHROID [Concomitant]
     Indication: THYROID DISORDER
  3. AMLODIPINE [Concomitant]
     Indication: HYPERTENSION
  4. ZETIA [Concomitant]
     Indication: BLOOD CHOLESTEROL INCREASED
  5. MAVIK [Concomitant]
     Indication: HYPERTENSION
  6. DOXICYCLINE MONOHYDRATE [Concomitant]
  7. PRILOSEC [Concomitant]
  8. ASPIRIN [Concomitant]

REACTIONS (9)
  - ASTHENIA [None]
  - COUGH [None]
  - DYSPNOEA [None]
  - EAR DISORDER [None]
  - FATIGUE [None]
  - INCREASED UPPER AIRWAY SECRETION [None]
  - NASAL CONGESTION [None]
  - TONGUE DISORDER [None]
  - WHEEZING [None]
